FAERS Safety Report 4390949-0 (Version None)
Quarter: 2004Q3

REPORT INFORMATION
  Report Type: 
  Country: None (occurrence: None)
  Receive Date: 20040702
  Receipt Date: 20040702
  Transmission Date: 20050211
  Serious: No
  Sender: FDA-Public Use
  Company Number: None

PATIENT
  Age: 76 Year
  Sex: Female
  Weight: 87.0906 kg

DRUGS (2)
  1. PRILOSEC [Suspect]
     Indication: EPIGASTRIC DISCOMFORT
     Dosage: ORAL - ONCE EVERY 24 HRS X 3 DAYS
     Route: 048
     Dates: start: 20040622
  2. PRILOSEC [Suspect]
     Indication: GASTROOESOPHAGEAL REFLUX DISEASE
     Dosage: ORAL - ONCE EVERY 24 HRS X 3 DAYS
     Route: 048
     Dates: start: 20040622

REACTIONS (3)
  - ABDOMINAL DISCOMFORT [None]
  - HAEMATOCHEZIA [None]
  - PHARMACEUTICAL PRODUCT COMPLAINT [None]
